FAERS Safety Report 8431850-2 (Version None)
Quarter: 2012Q2

REPORT INFORMATION
  Report Type: 
  Country: None (occurrence: None)
  Receive Date: 20120613
  Receipt Date: 20120606
  Transmission Date: 20120825
  Serious: Yes (Other)
  Sender: FDA-Public Use
  Company Number: US-SANOFI-AVENTIS-2012SA029828

PATIENT
  Age: 60 Year
  Sex: Female
  Weight: 54.4 kg

DRUGS (1)
  1. ALLEGRA [Suspect]
     Dosage: DOSE:2 TEASPOON(S)
     Route: 048
     Dates: start: 20120426, end: 20120426

REACTIONS (2)
  - PHARYNGEAL OEDEMA [None]
  - FEAR [None]
